FAERS Safety Report 10602634 (Version 2)
Quarter: 2015Q1

REPORT INFORMATION
  Report Type: Spontaneous
  Country: US (occurrence: US)
  Receive Date: 20141124
  Receipt Date: 20150107
  Transmission Date: 20150720
  Serious: Yes (Other)
  Sender: FDA-Public Use
  Company Number: US-PFIZER INC-2014322452

PATIENT
  Age: 45 Year
  Sex: Female
  Weight: 67.12 kg

DRUGS (2)
  1. LYRICA [Suspect]
     Active Substance: PREGABALIN
     Dosage: 150 MG (ONE 150MG), 3X/DAY
     Route: 048
  2. LYRICA [Suspect]
     Active Substance: PREGABALIN
     Indication: FIBROMYALGIA
     Dosage: 150 MG (TWO 75MG), 3X/DAY
     Route: 048

REACTIONS (13)
  - Hypoaesthesia [Not Recovered/Not Resolved]
  - Drug ineffective [Not Recovered/Not Resolved]
  - Foot fracture [Unknown]
  - Poor peripheral circulation [Not Recovered/Not Resolved]
  - Ingrowing nail [Not Recovered/Not Resolved]
  - Gait disturbance [Unknown]
  - Disease progression [Unknown]
  - Dry skin [Not Recovered/Not Resolved]
  - Product label issue [Unknown]
  - Skin fissures [Not Recovered/Not Resolved]
  - Nail infection [Not Recovered/Not Resolved]
  - Pain in extremity [Unknown]
  - Drug dispensing error [Unknown]

NARRATIVE: CASE EVENT DATE: 2014
